FAERS Safety Report 14915117 (Version 1)
Quarter: 2018Q2

REPORT INFORMATION
  Report Type: Spontaneous
  Country: IT (occurrence: IT)
  Receive Date: 20180518
  Receipt Date: 20180518
  Transmission Date: 20180711
  Serious: Yes (Death, Hospitalization, Other)
  Sender: FDA-Public Use
  Company Number: IT-ASTRAZENECA-2018SE63518

PATIENT
  Age: 51 Year
  Sex: Female

DRUGS (1)
  1. OLAPARIB. [Suspect]
     Active Substance: OLAPARIB
     Indication: OVARIAN CANCER
     Route: 048
     Dates: start: 20160401

REACTIONS (8)
  - Nausea [Unknown]
  - Pulmonary embolism [Unknown]
  - Respiratory failure [Fatal]
  - Drug hypersensitivity [Unknown]
  - Metastases to lung [Unknown]
  - Metastases to liver [Unknown]
  - Thrombocytopenia [Unknown]
  - Fatigue [Unknown]

NARRATIVE: CASE EVENT DATE: 2016
